FAERS Safety Report 21528820 (Version 2)
Quarter: 2022Q4

REPORT INFORMATION
  Report Type: Other
  Country: JP (occurrence: JP)
  Receive Date: 20221031
  Receipt Date: 20221108
  Transmission Date: 20230112
  Serious: Yes (Other)
  Sender: FDA-Public Use
  Company Number: JP-CHUGAI-2022042535

PATIENT
  Age: 66 Year
  Sex: Male

DRUGS (12)
  1. BEVACIZUMAB [Suspect]
     Active Substance: BEVACIZUMAB
     Indication: Bladder cancer
     Route: 041
  2. BEVACIZUMAB [Suspect]
     Active Substance: BEVACIZUMAB
     Route: 041
     Dates: start: 202011
  3. IRINOTECAN HYDROCHLORIDE [Concomitant]
     Active Substance: IRINOTECAN HYDROCHLORIDE
     Indication: Bladder cancer
     Dosage: UNK
     Route: 041
     Dates: start: 202011
  4. IRINOTECAN HYDROCHLORIDE [Concomitant]
     Active Substance: IRINOTECAN HYDROCHLORIDE
     Dosage: UNK
     Route: 041
  5. FLUOROURACIL [Concomitant]
     Active Substance: FLUOROURACIL
     Indication: Bladder cancer
     Dosage: UNK
     Route: 041
  6. FLUOROURACIL [Concomitant]
     Active Substance: FLUOROURACIL
     Dosage: UNK
     Route: 040
     Dates: start: 202011
  7. FLUOROURACIL [Concomitant]
     Active Substance: FLUOROURACIL
     Dosage: UNK
     Route: 040
  8. FLUOROURACIL [Concomitant]
     Active Substance: FLUOROURACIL
     Dosage: UNK
     Route: 041
  9. FLUOROURACIL [Concomitant]
     Active Substance: FLUOROURACIL
     Dates: start: 202008
  10. LEVOLEUCOVORIN CALCIUM [Concomitant]
     Active Substance: LEVOLEUCOVORIN CALCIUM
     Indication: Bladder cancer
     Dosage: UNK
     Route: 041
     Dates: start: 202011
  11. LEVOLEUCOVORIN CALCIUM [Concomitant]
     Active Substance: LEVOLEUCOVORIN CALCIUM
     Dosage: UNK
     Route: 041
  12. LEVOLEUCOVORIN CALCIUM [Concomitant]
     Active Substance: LEVOLEUCOVORIN CALCIUM
     Dates: start: 202008

REACTIONS (3)
  - Decreased appetite [Unknown]
  - Nausea [Unknown]
  - Off label use [Unknown]
